FAERS Safety Report 19952564 (Version 3)
Quarter: 2022Q2

REPORT INFORMATION
  Report Type: Report from Study
  Country: EG (occurrence: EG)
  Receive Date: 20211013
  Receipt Date: 20220525
  Transmission Date: 20220720
  Serious: Yes (Other)
  Sender: FDA-Public Use
  Company Number: EG-NOVARTISPH-NVSC2021EG223199

PATIENT
  Age: 55 Year
  Sex: Female

DRUGS (8)
  1. GILENYA [Suspect]
     Active Substance: FINGOLIMOD HYDROCHLORIDE
     Indication: Multiple sclerosis
     Dosage: 1 DF, QD
     Route: 048
     Dates: start: 201911, end: 202112
  2. GILENYA [Suspect]
     Active Substance: FINGOLIMOD HYDROCHLORIDE
     Dosage: 1 DOSAGE FORM, QOD  (EVERY OTHER DAY)
     Route: 048
     Dates: start: 202112
  3. VITAMIN D NOS [Concomitant]
     Active Substance: VITAMIN D NOS
     Indication: Vitamin supplementation
     Dosage: 1 DF, QD (WITH THE START OF COVID 19 PANDEMIC)
     Route: 048
     Dates: start: 2019
  4. DELTAVIT [Concomitant]
     Indication: Vitamin supplementation
     Dosage: 1 DF, QD
     Route: 048
     Dates: start: 2016
  5. ZINC [Concomitant]
     Active Substance: ZINC
     Indication: Mineral supplementation
     Dosage: 1 DF, QD (WITH THE START OF COVID19 PANDEMIC)
     Route: 048
     Dates: start: 201911
  6. FOLIC ACID [Concomitant]
     Active Substance: FOLIC ACID
     Indication: Vitamin supplementation
     Dosage: 1 DF, QD
     Route: 065
     Dates: start: 201611
  7. FEROGLOBIN [Concomitant]
     Indication: Vitamin supplementation
     Dosage: 1 DF, QD
     Route: 048
     Dates: start: 201611
  8. ETHINYL ESTRADIOL\GESTODENE [Concomitant]
     Active Substance: ETHINYL ESTRADIOL\GESTODENE
     Indication: Lymphoma
     Dosage: 1 DF, QD
     Route: 048
     Dates: start: 2016

REACTIONS (18)
  - Hepatic enzyme increased [Unknown]
  - Chromaturia [Recovering/Resolving]
  - Exophthalmos [Not Recovered/Not Resolved]
  - Balance disorder [Not Recovered/Not Resolved]
  - Drug ineffective [Not Recovered/Not Resolved]
  - Multiple sclerosis relapse [Not Recovered/Not Resolved]
  - Hypoaesthesia [Not Recovered/Not Resolved]
  - Fatigue [Not Recovered/Not Resolved]
  - Back pain [Not Recovered/Not Resolved]
  - Memory impairment [Not Recovered/Not Resolved]
  - Myocardial infarction [Recovered/Resolved]
  - Spinal cord disorder [Unknown]
  - Gait disturbance [Not Recovered/Not Resolved]
  - Hyperhidrosis [Not Recovered/Not Resolved]
  - Flushing [Not Recovered/Not Resolved]
  - Haemoglobin decreased [Recovered/Resolved]
  - Body temperature increased [Not Recovered/Not Resolved]
  - Inappropriate schedule of product administration [Not Recovered/Not Resolved]

NARRATIVE: CASE EVENT DATE: 20191201
